FAERS Safety Report 15210296 (Version 4)
Quarter: 2020Q3

REPORT INFORMATION
  Report Type: Report from Study
  Country: GB (occurrence: GB)
  Receive Date: 20180727
  Receipt Date: 20200731
  Transmission Date: 20201102
  Serious: Yes (Hospitalization, Other)
  Sender: FDA-Public Use
  Company Number: PHHY2018GB054085

PATIENT
  Age: 87 Year
  Sex: Male
  Weight: 79 kg

DRUGS (1)
  1. OMNITROPE [Suspect]
     Active Substance: SOMATROPIN
     Indication: GROWTH HORMONE DEFICIENCY
     Dosage: 0.2 MG, QD (5 MG/1.5 ML SOLUTION FOR INJECTION)
     Route: 058
     Dates: start: 20130306

REACTIONS (14)
  - Paranoia [Unknown]
  - Gastroenteritis [Recovered/Resolved]
  - Gastritis [Recovered/Resolved]
  - Diverticulum [Recovered/Resolved]
  - Abdominal distension [Recovered/Resolved]
  - Gastroenteritis viral [Unknown]
  - Hallucination [Unknown]
  - Diarrhoea [Recovered/Resolved]
  - Duodenitis [Unknown]
  - Aortic aneurysm [Recovered/Resolved]
  - Diverticulitis [Recovered/Resolved]
  - Abdominal pain [Recovered/Resolved]
  - Delirium [Recovered/Resolved]
  - Agitation [Unknown]

NARRATIVE: CASE EVENT DATE: 201610
